APPROVED DRUG PRODUCT: SUMAVEL DOSEPRO
Active Ingredient: SUMATRIPTAN SUCCINATE
Strength: EQ 6MG BASE/0.5ML (EQ 12MG BASE/ML)
Dosage Form/Route: INJECTABLE;SUBCUTANEOUS
Application: N022239 | Product #001
Applicant: ENDO OPERATIONS LTD
Approved: Jul 15, 2009 | RLD: Yes | RS: No | Type: DISCN

PATENTS:
Patent 7901385 | Expires: Jul 31, 2026
Patent 7776007 | Expires: Nov 22, 2026